FAERS Safety Report 9918249 (Version 2)
Quarter: 2015Q1

REPORT INFORMATION
  Report Type: Report from Study
  Country: US (occurrence: US)
  Receive Date: 20140224
  Receipt Date: 20150317
  Transmission Date: 20150721
  Serious: Yes (Hospitalization, Other)
  Sender: FDA-Public Use
  Company Number: US-ROCHE-1332804

PATIENT
  Age: 84 Year
  Sex: Female

DRUGS (10)
  1. COUMADIN [Concomitant]
     Active Substance: WARFARIN SODIUM
  2. AMLODIPINE [Concomitant]
     Active Substance: AMLODIPINE BESYLATE
  3. FOSINOPRIL [Concomitant]
     Active Substance: FOSINOPRIL
  4. AVASTIN [Suspect]
     Active Substance: BEVACIZUMAB
     Indication: AGE-RELATED MACULAR DEGENERATION
     Route: 065
     Dates: start: 20101006
  5. CLONIDINE. [Concomitant]
     Active Substance: CLONIDINE
  6. TETRACAINE [Concomitant]
     Active Substance: TETRACAINE\TETRACAINE HYDROCHLORIDE
  7. BETADINE [Concomitant]
     Active Substance: POVIDONE-IODINE
     Route: 065
  8. LUCENTIS [Suspect]
     Active Substance: RANIBIZUMAB
     Indication: AGE-RELATED MACULAR DEGENERATION
     Route: 050
     Dates: start: 20090722
  9. TOBREX [Concomitant]
     Active Substance: TOBRAMYCIN
  10. ATACAND [Concomitant]
     Active Substance: CANDESARTAN CILEXETIL

REACTIONS (10)
  - Cataract [Unknown]
  - Hip fracture [Unknown]
  - Off label use [Unknown]
  - Corneal neovascularisation [Unknown]
  - Retinal scar [Unknown]
  - Visual acuity reduced [Unknown]
  - Cystoid macular oedema [Unknown]
  - Retinal haemorrhage [Unknown]
  - Macular fibrosis [Unknown]
  - Macular degeneration [Unknown]

NARRATIVE: CASE EVENT DATE: 20100106
